FAERS Safety Report 9665220 (Version 2)
Quarter: 2013Q4

REPORT INFORMATION
  Report Type: Spontaneous
  Country: US (occurrence: US)
  Receive Date: 20131101
  Receipt Date: 20131101
  Transmission Date: 20140711
  Serious: Yes (Hospitalization, Other)
  Sender: FDA-Public Use
  Company Number: US-009507513-2009-190406-NL

PATIENT
  Sex: Female
  Weight: 54.4 kg

DRUGS (8)
  1. NUVARING [Suspect]
     Indication: CONTRACEPTION
     Dosage: DOSE TEXT: 3 WEEKS A MONTH, CONTINUING: NO
     Dates: start: 200606, end: 20061005
  2. SYNTHROID [Concomitant]
     Indication: HYPOTHYROIDISM
     Dosage: DOSE TEXT: 25 UG/ML AS DIRECTED Q DAY
     Route: 048
     Dates: start: 2006
  3. PERCOCET [Concomitant]
     Dosage: DOSE TEXT: EVERY 6 HOURS DAILY,  AS NEEDED, FREQUENCY: PRN
  4. PROMETHAZINE [Concomitant]
     Dosage: DOSE TEXT: EVERY 6 HOURS, UNIT DOSE: 25 MG
  5. LEXAPRO [Concomitant]
     Dosage: UNIT DOSE: 10 MG
     Route: 048
  6. INDERAL [Concomitant]
     Dosage: UNIT DOSE: 20 MG
  7. IMITREX (SUMATRIPTAN) [Concomitant]
     Dosage: FREQUENCY: ONCE
  8. RELA [Concomitant]
     Dosage: 350 MG, TID

REACTIONS (3)
  - Pulmonary embolism [Recovered/Resolved]
  - Goitre [Unknown]
  - Pharyngitis [Unknown]
